FAERS Safety Report 5344113-9 (Version None)
Quarter: 2007Q2

REPORT INFORMATION
  Report Type: 
  Country: None (occurrence: None)
  Receive Date: 20070604
  Receipt Date: 20070529
  Transmission Date: 20071010
  Serious: Yes (Hospitalization)
  Sender: FDA-Public Use
  Company Number: FR-JNJFOC-20070506750

PATIENT
  Age: 36 Year
  Sex: Female

DRUGS (4)
  1. REMICADE [Suspect]
     Route: 042
  2. REMICADE [Suspect]
     Indication: CROHN'S DISEASE
     Route: 042
  3. PENTASA [Suspect]
     Indication: CROHN'S DISEASE
  4. LEVOTHYROXINE SODIUM [Suspect]
     Indication: HYPOTHYROIDISM

REACTIONS (3)
  - ARTHRALGIA [None]
  - CHEST PAIN [None]
  - PLEUROPERICARDITIS [None]
